FAERS Safety Report 5192903-8 (Version None)
Quarter: 2006Q4

REPORT INFORMATION
  Report Type: 
  Country: None (occurrence: None)
  Receive Date: 20061228
  Receipt Date: 20060210
  Transmission Date: 20070319
  Serious: No
  Sender: FDA-Public Use
  Company Number: US-GLAXOSMITHKLINE-A0593288A

PATIENT
  Sex: Male

DRUGS (6)
  1. FLONASE [Suspect]
     Dosage: 1SPR SINGLE DOSE
     Route: 045
  2. ANTIVERT [Concomitant]
  3. ZANTAC [Concomitant]
  4. TYLENOL [Concomitant]
  5. TYLENOL W/ CODEINE [Concomitant]
  6. MYLANTA [Concomitant]

REACTIONS (2)
  - CHEST PAIN [None]
  - DYSPEPSIA [None]
